FAERS Safety Report 5081748-5 (Version None)
Quarter: 2006Q3

REPORT INFORMATION
  Report Type: 
  Country: None (occurrence: None)
  Receive Date: 20060816
  Receipt Date: 20060727
  Transmission Date: 20061208
  Serious: Yes (Life-Threatening, Other)
  Sender: FDA-Public Use
  Company Number: CA-BAYER-200613233GDS

PATIENT
  Age: 43 Year
  Sex: Female
  Weight: 70 kg

DRUGS (4)
  1. TRASYLOL [Suspect]
     Indication: VASCULAR BYPASS GRAFT
     Route: 042
     Dates: start: 20060609
  2. ACE [Concomitant]
     Indication: CARDIAC FAILURE
  3. B-BLOCKER [Concomitant]
     Indication: CARDIAC FAILURE
  4. WARFARIN SODIUM [Concomitant]
     Indication: CARDIAC FAILURE

REACTIONS (5)
  - ANAPHYLACTIC SHOCK [None]
  - BLOOD PRESSURE DECREASED [None]
  - BRONCHOSPASM [None]
  - OEDEMA PERIPHERAL [None]
  - RASH [None]
